FAERS Safety Report 4574743-3 (Version None)
Quarter: 2005Q1

REPORT INFORMATION
  Report Type: 
  Country: None (occurrence: None)
  Receive Date: 20050208
  Receipt Date: 20030728
  Transmission Date: 20050727
  Serious: No
  Sender: FDA-Public Use
  Company Number: US-GLAXOSMITHKLINE-A0418461A

PATIENT
  Age: 72 Year
  Sex: Female

DRUGS (5)
  1. PAXIL CR [Suspect]
     Indication: DEPRESSION
     Dosage: 25MG PER DAY
     Route: 048
     Dates: start: 20030701
  2. INDERAL [Concomitant]
     Route: 065
  3. LOTREL [Concomitant]
     Route: 065
  4. DIAZEPAM [Concomitant]
     Route: 065
  5. BLOOD PRESSURE MEDICATION [Concomitant]
     Route: 065

REACTIONS (3)
  - ANORGASMIA [None]
  - INSOMNIA [None]
  - LIBIDO DECREASED [None]
